FAERS Safety Report 6331271-2 (Version None)
Quarter: 2009Q3

REPORT INFORMATION
  Report Type: 
  Country: None (occurrence: None)
  Receive Date: 20090827
  Receipt Date: 20090821
  Transmission Date: 20100115
  Serious: Yes (Death)
  Sender: FDA-Public Use
  Company Number: US-GILEAD-2009-0023838

PATIENT
  Sex: Female

DRUGS (21)
  1. LETAIRIS [Suspect]
     Indication: PULMONARY HYPERTENSION
  2. REVATIO [Concomitant]
  3. SIMVASTATIN [Concomitant]
  4. DIOVAN HCT [Concomitant]
  5. LANOXIN [Concomitant]
  6. ATENOLOL [Concomitant]
  7. SPIRONOLACTONE [Concomitant]
  8. COUMADIN [Concomitant]
  9. ASPIRIN [Concomitant]
  10. LASIX [Concomitant]
  11. NEURONTIN [Concomitant]
  12. LORTAB [Concomitant]
  13. TETRACYCLINE [Concomitant]
  14. CYMBALTA [Concomitant]
  15. XANAX [Concomitant]
  16. PREMARIN [Concomitant]
  17. PRILOSEC [Concomitant]
  18. SENNA [Concomitant]
  19. MIRALAX [Concomitant]
  20. CALCIUM WITH VITAMIN D [Concomitant]
  21. POTASSIUM CHLORIDE [Concomitant]

REACTIONS (1)
  - DEATH [None]
